FAERS Safety Report 4965875-6 (Version None)
Quarter: 2006Q2

REPORT INFORMATION
  Report Type: 
  Country: None (occurrence: None)
  Receive Date: 20060406
  Receipt Date: 20060406
  Transmission Date: 20061013
  Serious: Yes (Hospitalization, Disabling)
  Sender: FDA-Public Use
  Company Number: None

PATIENT
  Sex: Male
  Weight: 80.559 kg

DRUGS (7)
  1. AMIODARONE HCL [Suspect]
     Indication: VENTRICULAR TACHYCARDIA
     Dosage: 200 MG ONCE DAILY PO
     Route: 048
     Dates: start: 20050301, end: 20060207
  2. METOPROLOL XR [Concomitant]
  3. ASPIRIN [Concomitant]
  4. DIGOXIN [Concomitant]
  5. NITROGLYCERIN [Concomitant]
  6. LASIX [Concomitant]
  7. HYDROMORPHONE HCL [Concomitant]

REACTIONS (7)
  - CARDIAC FAILURE CONGESTIVE [None]
  - CONDITION AGGRAVATED [None]
  - DYSPNOEA [None]
  - HOT FLUSH [None]
  - HYPERTHYROIDISM [None]
  - VENTRICULAR TACHYCARDIA [None]
  - WEIGHT DECREASED [None]
